FAERS Safety Report 10260169 (Version 1)
Quarter: 2014Q2

REPORT INFORMATION
  Report Type: Spontaneous
  Country: PH (occurrence: PH)
  Receive Date: 20140625
  Receipt Date: 20140625
  Transmission Date: 20141212
  Serious: Yes (Death, Other)
  Sender: FDA-Public Use
  Company Number: PH-009507513-1406PHL011433

PATIENT
  Age: 63 Year
  Sex: Male
  Weight: 61.22 kg

DRUGS (2)
  1. JANUMET [Suspect]
     Indication: DIABETES MELLITUS
     Dosage: ONE TABLET TWICE A DAY
     Route: 048
  2. TELMISARTAN [Concomitant]

REACTIONS (2)
  - Cerebrovascular accident [Fatal]
  - Cerebrovascular accident [Unknown]
